FAERS Safety Report 8264182-6 (Version None)
Quarter: 2012Q2

REPORT INFORMATION
  Report Type: 
  Country: None (occurrence: None)
  Receive Date: 20120403
  Receipt Date: 20120321
  Transmission Date: 20120825
  Serious: Yes (Hospitalization, Other)
  Sender: FDA-Public Use
  Company Number: 2012MA003825

PATIENT
  Sex: Female
  Weight: 48.5349 kg

DRUGS (74)
  1. AEROBID [Concomitant]
  2. AMOXICILLIN [Concomitant]
  3. FLOVENT [Concomitant]
  4. KETEK [Concomitant]
  5. METHIMAZOLE [Concomitant]
  6. PROTONIX [Concomitant]
  7. ROCEPHIN [Concomitant]
  8. RYTHMOL [Concomitant]
  9. VITAMIN D [Concomitant]
  10. XOPENEX [Concomitant]
  11. CARDIZEM [Concomitant]
  12. CITRACAL [Concomitant]
  13. FACTIVE 7 [Concomitant]
  14. FORTEO [Concomitant]
  15. PREVACID [Concomitant]
  16. TAMIFLU [Concomitant]
  17. ZENAPAX [Concomitant]
  18. DIGOXIN [Suspect]
     Indication: ATRIAL FIBRILLATION
     Dosage: 0.25 MG;QD
     Dates: start: 20020217, end: 20071220
  19. ACTONEL [Concomitant]
  20. DOXYCYCLINE [Concomitant]
  21. EFFUDEX [Concomitant]
  22. ISOSORBIDE MONONITRATE [Concomitant]
  23. PRAVACHOL [Concomitant]
  24. PREMARIN [Concomitant]
  25. ALLEGRA [Concomitant]
  26. AVELOX [Concomitant]
  27. DIOVAN [Concomitant]
  28. FOSAMAX [Concomitant]
  29. LASIX [Concomitant]
  30. LEVAQUIN [Concomitant]
  31. LIPITOR [Concomitant]
  32. SYNVISC [Concomitant]
  33. TAPAZOLE [Concomitant]
  34. TYLENOL (CAPLET) [Concomitant]
  35. ADVAIR DISKUS 100/50 [Concomitant]
  36. AMBIEN [Concomitant]
  37. COMBIVENT [Concomitant]
  38. DILTIAZEM HCL [Concomitant]
  39. HYZAAR [Concomitant]
  40. MIACALCIN [Concomitant]
  41. MOBIC [Concomitant]
  42. SALT TABLETS [Concomitant]
  43. ZELNORM [Concomitant]
  44. ALBUTEROL [Concomitant]
  45. B-TUSS [Concomitant]
  46. CHOLESTEROL [Concomitant]
  47. DECADRON [Concomitant]
  48. KENALOG [Concomitant]
  49. MARCAINE [Concomitant]
  50. PLAVIX [Concomitant]
  51. PROPAFENONE HCL [Concomitant]
  52. SINGULAIR [Concomitant]
  53. SOLTAB [Concomitant]
  54. SPIRIVA [Concomitant]
  55. TUSSIONEX [Concomitant]
  56. ZITHROMAX [Concomitant]
  57. ANTIVERT [Concomitant]
  58. BONIVA [Concomitant]
  59. DEPO-MEDROL [Concomitant]
  60. DUONEB [Concomitant]
  61. FLONASE [Concomitant]
  62. LOPRESSOR [Concomitant]
  63. POTASSIUM [Concomitant]
  64. PROPYLTHIOURACIL [Concomitant]
  65. TOPROL-XL [Concomitant]
  66. ASPIRIN [Concomitant]
  67. ATROVENT [Concomitant]
  68. COUMADIN [Concomitant]
  69. FLEXERIL [Concomitant]
  70. POTASSIUM CHLORIDE [Concomitant]
  71. KLOR-CON [Concomitant]
  72. LEXAPRO [Concomitant]
  73. MULTI-VITAMINS [Concomitant]
  74. PREDNISONE TAB [Concomitant]

REACTIONS (125)
  - LEFT VENTRICULAR HYPERTROPHY [None]
  - CARDIAC FAILURE [None]
  - ARTHRITIS [None]
  - RHINITIS ALLERGIC [None]
  - HYPOTENSION [None]
  - HYPOTHROMBINAEMIA [None]
  - HYPERTHYROIDISM [None]
  - ARTHRALGIA [None]
  - FUNGAL INFECTION [None]
  - CHOLELITHIASIS [None]
  - DYSPEPSIA [None]
  - UPPER RESPIRATORY TRACT INFECTION [None]
  - CORONARY ARTERY DISEASE [None]
  - PRESYNCOPE [None]
  - CELLULITIS [None]
  - ATELECTASIS [None]
  - MITRAL VALVE PROLAPSE [None]
  - PNEUMONITIS [None]
  - JOINT EFFUSION [None]
  - ATRIOVENTRICULAR BLOCK FIRST DEGREE [None]
  - LYMPHOMA [None]
  - WITHDRAWAL SYNDROME [None]
  - ASTHMA [None]
  - DEPRESSION [None]
  - VITAMIN D DEFICIENCY [None]
  - TEMPERATURE INTOLERANCE [None]
  - LABYRINTHITIS [None]
  - THYROTOXIC CRISIS [None]
  - ANXIETY [None]
  - INFLUENZA [None]
  - MUSCULOSKELETAL PAIN [None]
  - FATIGUE [None]
  - JAUNDICE [None]
  - INTERVERTEBRAL DISC DEGENERATION [None]
  - GAIT DISTURBANCE [None]
  - AORTIC VALVE INCOMPETENCE [None]
  - HEART RATE IRREGULAR [None]
  - LUNG NEOPLASM [None]
  - DIASTOLIC DYSFUNCTION [None]
  - DYSPNOEA [None]
  - WEIGHT INCREASED [None]
  - CONSTIPATION [None]
  - ABDOMINAL PAIN [None]
  - LIVER FUNCTION TEST ABNORMAL [None]
  - BASEDOW'S DISEASE [None]
  - HYPOTHYROIDISM [None]
  - SICK SINUS SYNDROME [None]
  - DRY EYE [None]
  - MUSCULOSKELETAL STIFFNESS [None]
  - TOXICITY TO VARIOUS AGENTS [None]
  - HYPERLIPIDAEMIA [None]
  - BLISTER [None]
  - FEELING ABNORMAL [None]
  - BREATH SOUNDS ABNORMAL [None]
  - AORTIC ARTERIOSCLEROSIS [None]
  - CHEST DISCOMFORT [None]
  - TACHYCARDIA [None]
  - DYSLIPIDAEMIA [None]
  - LUNG INFECTION [None]
  - MITRAL VALVE INCOMPETENCE [None]
  - OSTEOARTHRITIS [None]
  - CHRONIC OBSTRUCTIVE PULMONARY DISEASE [None]
  - FALL [None]
  - PNEUMONIA [None]
  - INSOMNIA [None]
  - INTERNATIONAL NORMALISED RATIO INCREASED [None]
  - NAUSEA [None]
  - CONTUSION [None]
  - SYNCOPE [None]
  - EYE DISORDER [None]
  - CARDIAC FAILURE CONGESTIVE [None]
  - STAPHYLOCOCCAL INFECTION [None]
  - CYANOSIS [None]
  - TRICUSPID VALVE INCOMPETENCE [None]
  - DECREASED APPETITE [None]
  - HIATUS HERNIA [None]
  - SARCOIDOSIS [None]
  - VITREOUS DETACHMENT [None]
  - ASTHENIA [None]
  - ACTIVITIES OF DAILY LIVING IMPAIRED [None]
  - HYPERTENSION [None]
  - PULMONARY FIBROSIS [None]
  - HYPONATRAEMIA [None]
  - NASOPHARYNGITIS [None]
  - OROPHARYNGEAL PAIN [None]
  - RHEUMATOID ARTHRITIS [None]
  - EXOPHTHALMOS [None]
  - JOINT SWELLING [None]
  - SINUS BRADYCARDIA [None]
  - LEFT VENTRICULAR DYSFUNCTION [None]
  - EMPHYSEMA [None]
  - VENTRICULAR HYPERTROPHY [None]
  - CHILLS [None]
  - MYOSITIS [None]
  - TREMOR [None]
  - ATRIAL FIBRILLATION [None]
  - DRUG ABUSE [None]
  - BACK PAIN [None]
  - URINARY TRACT DISORDER [None]
  - BRONCHITIS [None]
  - MUSCULAR WEAKNESS [None]
  - DIPLOPIA [None]
  - EYE IRRITATION [None]
  - SPINAL OSTEOARTHRITIS [None]
  - PLEURAL FIBROSIS [None]
  - PULMONARY ARTERIAL PRESSURE INCREASED [None]
  - MYOCARDIAL ISCHAEMIA [None]
  - COMPRESSION FRACTURE [None]
  - BRONCHIAL HYPERREACTIVITY [None]
  - PALPITATIONS [None]
  - DIZZINESS [None]
  - OSTEOPOROSIS [None]
  - WEIGHT DECREASED [None]
  - IRRITABLE BOWEL SYNDROME [None]
  - GASTRITIS [None]
  - MYALGIA [None]
  - PARANASAL SINUS HYPERSECRETION [None]
  - INTERSTITIAL LUNG DISEASE [None]
  - CREPITATIONS [None]
  - SPINAL COLUMN STENOSIS [None]
  - ELECTROCARDIOGRAM ST-T CHANGE [None]
  - BLOOD PRESSURE DECREASED [None]
  - LYMPHOPROLIFERATIVE DISORDER [None]
  - VISUAL ACUITY REDUCED [None]
  - CATARACT [None]
